FAERS Safety Report 24867762 (Version 1)
Quarter: 2025Q1

REPORT INFORMATION
  Report Type: Spontaneous
  Country: US (occurrence: US)
  Receive Date: 20250121
  Receipt Date: 20250121
  Transmission Date: 20250409
  Serious: No
  Sender: TAKEDA
  Company Number: US-TAKEDA-2025TUS005881

PATIENT
  Age: 7 Decade
  Sex: Female
  Weight: 70 kg

DRUGS (2)
  1. DEXLANSOPRAZOLE [Suspect]
     Active Substance: DEXLANSOPRAZOLE
     Indication: Barrett^s oesophagus
     Dosage: 60 MILLIGRAM, QD
     Dates: start: 2023
  2. UNSPECIFIED INGREDIENT [Concomitant]
     Active Substance: UNSPECIFIED INGREDIENT

REACTIONS (5)
  - Influenza like illness [Unknown]
  - Condition aggravated [Unknown]
  - Dyspepsia [Unknown]
  - Pyrexia [Unknown]
  - Vomiting [Unknown]
